FAERS Safety Report 20819105 (Version 1)
Quarter: 2022Q2

REPORT INFORMATION
  Report Type: Spontaneous
  Country: US (occurrence: None)
  Receive Date: 20220511
  Receipt Date: 20220511
  Transmission Date: 20220721
  Serious: Yes (Other)
  Sender: FDA-Public Use
  Company Number: None

PATIENT
  Age: 14 Year
  Sex: Male
  Weight: 56.25 kg

DRUGS (2)
  1. MONTELUKAST [Suspect]
     Active Substance: MONTELUKAST SODIUM
     Indication: Bronchospasm
     Dosage: OTHER QUANTITY : 2 TABLET(S);?FREQUENCY : AT BEDTIME;?
     Route: 048
  2. albuterol inhaler PRN [Concomitant]

REACTIONS (11)
  - Mental disorder [None]
  - Anger [None]
  - Hostility [None]
  - Emotional disorder [None]
  - Decreased interest [None]
  - Apathy [None]
  - Memory impairment [None]
  - Tremor [None]
  - Dizziness [None]
  - Mood swings [None]
  - Withdrawal syndrome [None]

NARRATIVE: CASE EVENT DATE: 20220419
